FAERS Safety Report 8935394 (Version 1)
Quarter: 2012Q4

REPORT INFORMATION
  Report Type: Spontaneous
  Country: US (occurrence: None)
  Receive Date: 20121127
  Receipt Date: 20121127
  Transmission Date: 20130627
  Serious: Yes (Death)
  Sender: FDA-Public Use
  Company Number: None

PATIENT
  Age: 67 Year
  Sex: Female
  Weight: 97.4 kg

DRUGS (4)
  1. CYTARABINE [Suspect]
     Indication: ACUTE LYMPHOBLASTIC LEUKEMIA RECURRENT
     Route: 042
     Dates: start: 20121026, end: 20121029
  2. COMBOTOX [Suspect]
     Route: 042
     Dates: start: 20121102
  3. COMBOTOX [Suspect]
     Dates: start: 20121104
  4. COMBOTOX [Suspect]
     Dates: start: 20121106

REACTIONS (10)
  - Herpes zoster [None]
  - Neutropenia [None]
  - Body temperature increased [None]
  - Hypotension [None]
  - Respiratory failure [None]
  - Condition aggravated [None]
  - Haemoglobin decreased [None]
  - Haemodynamic instability [None]
  - Septic shock [None]
  - Cardiomyopathy [None]
